FAERS Safety Report 16334596 (Version 1)
Quarter: 2019Q2

REPORT INFORMATION
  Report Type: Spontaneous
  Country: US (occurrence: US)
  Receive Date: 20190520
  Receipt Date: 20190520
  Transmission Date: 20190711
  Serious: No
  Sender: FDA-Public Use
  Company Number: US-MERZ NORTH AMERICA, INC.-19MRZ-00218

PATIENT
  Age: 63 Year
  Sex: Female

DRUGS (2)
  1. ASCLERA [Suspect]
     Active Substance: POLIDOCANOL
     Indication: SUPERFICIAL VEIN PROMINENCE
     Dosage: 2ML
     Route: 042
     Dates: start: 20190306, end: 20190306
  2. ASCLERA [Suspect]
     Active Substance: POLIDOCANOL
     Dosage: 1ML
     Route: 042
     Dates: start: 20190306, end: 20190306

REACTIONS (1)
  - Urticaria [Recovering/Resolving]

NARRATIVE: CASE EVENT DATE: 20190316
